FAERS Safety Report 6179291-5 (Version None)
Quarter: 2009Q2

REPORT INFORMATION
  Report Type: 
  Country: None (occurrence: None)
  Receive Date: 20090430
  Receipt Date: 20090423
  Transmission Date: 20091009
  Serious: Yes (Death, Hospitalization)
  Sender: FDA-Public Use
  Company Number: CLOF-1000529

PATIENT
  Age: 44 Year
  Sex: Female

DRUGS (1)
  1. CLOLAR [Suspect]
     Indication: NON-HODGKIN'S LYMPHOMA
     Dosage: INTRAVENOUS
     Route: 042
     Dates: start: 20070423, end: 20070611

REACTIONS (1)
  - HYPERCALCAEMIA [None]
